FAERS Safety Report 7457992-6 (Version None)
Quarter: 2011Q1

REPORT INFORMATION
  Report Type: 
  Country: None (occurrence: None)
  Receive Date: 20110302
  Receipt Date: 20101022
  Transmission Date: 20110831
  Serious: Yes (Hospitalization, Disabling)
  Sender: FDA-Public Use
  Company Number: 163-21880-10062439

PATIENT
  Age: 66 Year
  Sex: Female

DRUGS (3)
  1. REVLIMID [Suspect]
     Indication: MULTIPLE MYELOMA
     Dosage: 25 MF, DAILY D1-21 Q 28D, PO
     Route: 048
     Dates: start: 20100422, end: 20100611
  2. NORVASC [Concomitant]
  3. DECADRON [Concomitant]

REACTIONS (4)
  - HYPERTENSIVE ENCEPHALOPATHY [None]
  - VIRAL INFECTION [None]
  - ASTHENIA [None]
  - RENAL FAILURE CHRONIC [None]
